FAERS Safety Report 24247619 (Version 10)
Quarter: 2025Q1

REPORT INFORMATION
  Report Type: Report from Study
  Country: DE (occurrence: DE)
  Receive Date: 20240826
  Receipt Date: 20250324
  Transmission Date: 20250409
  Serious: Yes (Hospitalization, Other)
  Sender: UCB
  Company Number: DE-UCBSA-2024041200

PATIENT
  Age: 40 Year
  Sex: Female
  Weight: 60 kg

DRUGS (3)
  1. BIMEKIZUMAB [Suspect]
     Active Substance: BIMEKIZUMAB
     Indication: Axial spondyloarthritis
     Dosage: 160 MILLIGRAM, EV 4 WEEKS
     Route: 058
     Dates: start: 20240507, end: 20241224
  2. OMEPRAZOLE [Concomitant]
     Active Substance: OMEPRAZOLE
     Indication: Prophylaxis
     Dates: start: 20110322
  3. CELEBREX [Concomitant]
     Active Substance: CELECOXIB
     Indication: Axial spondyloarthritis
     Dates: start: 20150702

REACTIONS (6)
  - Rotator cuff syndrome [Recovered/Resolved]
  - Periarthritis [Unknown]
  - Surgery [Unknown]
  - Vulvovaginal mycotic infection [Recovered/Resolved]
  - Fungal infection [Recovered/Resolved]
  - Upper respiratory tract infection [Unknown]

NARRATIVE: CASE EVENT DATE: 20240614
